FAERS Safety Report 4791920-7 (Version None)
Quarter: 2005Q4

REPORT INFORMATION
  Report Type: 
  Country: None (occurrence: None)
  Receive Date: 20051005
  Receipt Date: 20050922
  Transmission Date: 20060501
  Serious: Yes (Death, Other)
  Sender: FDA-Public Use
  Company Number: 2005-BP-16803RO

PATIENT
  Age: 67 Year
  Sex: Male

DRUGS (2)
  1. CLARITHYROMYCIN (CLARITHROMYCIN) [Suspect]
     Indication: INFECTION
     Dosage: 1 GM/DAY, PO
     Route: 048
  2. COLCHICINE (COLCHICINE) [Suspect]
     Indication: AMYLOIDOSIS
     Dosage: 1 MG/DAY (NR), PO
     Route: 048

REACTIONS (8)
  - ABDOMINAL PAIN [None]
  - BONE MARROW FAILURE [None]
  - DIARRHOEA [None]
  - DRUG INTERACTION [None]
  - LIVER DISORDER [None]
  - MULTI-ORGAN FAILURE [None]
  - MYALGIA [None]
  - PANCYTOPENIA [None]
